FAERS Safety Report 6086175-X (Version None)
Quarter: 2009Q1

REPORT INFORMATION
  Report Type: 
  Country: None (occurrence: None)
  Receive Date: 20090220
  Receipt Date: 20090212
  Transmission Date: 20090719
  Serious: Yes (Other)
  Sender: FDA-Public Use
  Company Number: AR-ABBOTT-09P-007-0497762-00

PATIENT
  Age: 67 Year
  Sex: Male

DRUGS (9)
  1. VALPROIC ACID [Suspect]
     Indication: PSYCHIATRIC SYMPTOM
  2. VALPROIC ACID [Suspect]
     Indication: COGNITIVE DISORDER
  3. VALPROIC ACID [Suspect]
     Indication: ABNORMAL BEHAVIOUR
  4. RIVASTIGMINE [Concomitant]
     Indication: PSYCHIATRIC SYMPTOM
  5. RIVASTIGMINE [Concomitant]
     Indication: COGNITIVE DISORDER
  6. RIVASTIGMINE [Concomitant]
     Indication: ABNORMAL BEHAVIOUR
  7. OLANZAPINE [Concomitant]
     Indication: DRUG USE FOR UNKNOWN INDICATION
  8. CLONAZEPAM [Concomitant]
     Indication: DRUG USE FOR UNKNOWN INDICATION
  9. PAROXETINE HCL [Concomitant]
     Indication: DEPRESSION

REACTIONS (4)
  - FACE INJURY [None]
  - FALL [None]
  - PARKINSONISM [None]
  - PLEUROTHOTONUS [None]
